FAERS Safety Report 4783203-6 (Version None)
Quarter: 2005Q3

REPORT INFORMATION
  Report Type: 
  Country: None (occurrence: None)
  Receive Date: 20050929
  Receipt Date: 20050922
  Transmission Date: 20060218
  Serious: Yes (Life-Threatening, Hospitalization)
  Sender: FDA-Public Use
  Company Number: SK-GLAXOSMITHKLINE-B0395256A

PATIENT
  Age: 14 Year
  Sex: Female

DRUGS (3)
  1. LAMICTAL [Suspect]
     Indication: EPILEPSY
     Dosage: 1MG SEE DOSAGE TEXT
     Route: 048
     Dates: start: 20050605, end: 20050704
  2. DEPAKENE [Concomitant]
     Route: 048
     Dates: start: 20050704, end: 20050710
  3. VALPROATE SODIUM [Concomitant]
     Indication: EPILEPSY
     Route: 065

REACTIONS (8)
  - DRUG HYPERSENSITIVITY [None]
  - ERYTHEMA MULTIFORME [None]
  - JAUNDICE [None]
  - LIVER DISORDER [None]
  - PYREXIA [None]
  - RASH [None]
  - TRANSAMINASES INCREASED [None]
  - VERTIGO [None]
